FAERS Safety Report 14369268 (Version 1)
Quarter: 2018Q1

REPORT INFORMATION
  Report Type: Report from Study
  Country: None (occurrence: BE)
  Receive Date: 20180109
  Receipt Date: 20180109
  Transmission Date: 20180509
  Serious: Yes (Hospitalization)
  Sender: FDA-Public Use
  Company Number: BE-ABBVIE-18K-013-2216627-00

PATIENT
  Sex: Male

DRUGS (4)
  1. DUODOPA [Suspect]
     Active Substance: CARBIDOPA\LEVODOPA
     Dosage: DOSAGES CONTINUOUSLY MONITORED AND ADJUSTED
     Route: 050
     Dates: start: 20140108, end: 20171006
  2. DUODOPA [Suspect]
     Active Substance: CARBIDOPA\LEVODOPA
     Indication: PARKINSON^S DISEASE
     Dosage: AM:4.5ML; CD: 3.3ML/H FOR 16HRS; ED: 2ML
     Route: 050
     Dates: start: 20131216, end: 20140108
  3. DUODOPA [Suspect]
     Active Substance: CARBIDOPA\LEVODOPA
     Dosage: AM: BETWEEN 6.5ML AND 9.5ML ; CD: BETWEEN 4ML/H AND 4.5ML/H FOR 16HRS; ED: 2ML
     Route: 050
     Dates: start: 20171006, end: 20180108
  4. DUODOPA [Suspect]
     Active Substance: CARBIDOPA\LEVODOPA
     Dosage: AM: 6.5ML; CD:  4ML/H FOR 16HRS; ED: 2.5ML
     Route: 050
     Dates: start: 20170108

REACTIONS (3)
  - Rib fracture [Unknown]
  - Fall [Recovered/Resolved]
  - Freezing phenomenon [Unknown]

NARRATIVE: CASE EVENT DATE: 2017
